FAERS Safety Report 9976218 (Version 1)
Quarter: 2014Q1

REPORT INFORMATION
  Report Type: Spontaneous
  Country: FR (occurrence: FR)
  Receive Date: 20140306
  Receipt Date: 20140306
  Transmission Date: 20141002
  Serious: Yes (Hospitalization)
  Sender: FDA-Public Use
  Company Number: PHHY2014FR025900

PATIENT
  Age: 63 Year
  Sex: Male

DRUGS (17)
  1. ALLOPURINOL [Suspect]
     Indication: GOUT
     Route: 048
  2. CEFEPIME [Suspect]
     Indication: ABSCESS LIMB
     Dosage: 2 G, QD
     Route: 065
     Dates: start: 20131023, end: 20131119
  3. DALACINE [Suspect]
     Indication: ABSCESS LIMB
     Dosage: 2.4 G, QD
     Route: 065
     Dates: start: 20131023, end: 20131119
  4. CALCIPARINE [Suspect]
     Indication: ANTICOAGULANT THERAPY
     Dosage: 0.5 ML, TID
     Route: 065
     Dates: start: 20131020, end: 20131119
  5. PERINDOPRIL [Suspect]
     Dosage: 4 MG, QD
     Route: 048
  6. LASILIX [Concomitant]
     Indication: PRODUCT USED FOR UNKNOWN INDICATION
     Route: 065
  7. TAHOR [Concomitant]
     Indication: PRODUCT USED FOR UNKNOWN INDICATION
     Dosage: 20 MG, UNK
     Route: 065
  8. LYRICA [Concomitant]
     Indication: PRODUCT USED FOR UNKNOWN INDICATION
     Dosage: 150 MG, BID
     Route: 065
  9. OMEPRAZOLE [Concomitant]
     Indication: PRODUCT USED FOR UNKNOWN INDICATION
     Dosage: 20 MG, UNK
     Route: 065
  10. BACTRIM [Concomitant]
     Indication: PRODUCT USED FOR UNKNOWN INDICATION
     Route: 065
  11. OFLOCET [Concomitant]
     Indication: PRODUCT USED FOR UNKNOWN INDICATION
     Route: 065
  12. RIFADINE [Concomitant]
     Indication: PRODUCT USED FOR UNKNOWN INDICATION
     Route: 065
     Dates: start: 20130806
  13. ROCEPHINE [Concomitant]
     Indication: PRODUCT USED FOR UNKNOWN INDICATION
     Route: 065
     Dates: start: 20130806
  14. AUGMENTIN [Concomitant]
     Indication: PRODUCT USED FOR UNKNOWN INDICATION
     Route: 065
  15. PIPERACILLIN/TAZOBACTAM [Concomitant]
     Indication: PRODUCT USED FOR UNKNOWN INDICATION
     Route: 065
     Dates: start: 20131021
  16. VANCOMYCIN [Concomitant]
     Indication: PRODUCT USED FOR UNKNOWN INDICATION
     Route: 065
     Dates: start: 20131022
  17. CIPROFLOXACIN [Concomitant]
     Indication: PRODUCT USED FOR UNKNOWN INDICATION
     Route: 065
     Dates: start: 20131023

REACTIONS (1)
  - Tubulointerstitial nephritis [Recovered/Resolved]
